FAERS Safety Report 5827239-2 (Version None)
Quarter: 2008Q3

REPORT INFORMATION
  Report Type: 
  Country: None (occurrence: None)
  Receive Date: 20080730
  Receipt Date: 20080721
  Transmission Date: 20090109
  Serious: Yes (Hospitalization)
  Sender: FDA-Public Use
  Company Number: ES-ROCHE-576841

PATIENT
  Age: 49 Year
  Sex: Female

DRUGS (2)
  1. ORLISTAT [Suspect]
     Indication: OBESITY
     Route: 065
  2. ORLISTAT [Suspect]
     Dosage: RESTARTED AFTER 20 DAYS.
     Route: 065

REACTIONS (1)
  - PANCREATITIS ACUTE [None]
